FAERS Safety Report 8114820-3 (Version None)
Quarter: 2012Q1

REPORT INFORMATION
  Report Type: 
  Country: None (occurrence: None)
  Receive Date: 20120206
  Receipt Date: 20120130
  Transmission Date: 20120608
  Serious: Yes (Hospitalization)
  Sender: FDA-Public Use
  Company Number: PHHY2012JP006642

PATIENT

DRUGS (5)
  1. TEGRETOL [Suspect]
     Dosage: 5 DF, (5 TABLETS 4 TIMES A DAY)
  2. URALYT [Concomitant]
  3. AVAPRO [Concomitant]
  4. ATELEC [Concomitant]
  5. TIOPRONIN [Concomitant]

REACTIONS (6)
  - TOXICITY TO VARIOUS AGENTS [None]
  - ALTERED STATE OF CONSCIOUSNESS [None]
  - ANTICONVULSANT DRUG LEVEL INCREASED [None]
  - GAIT DISTURBANCE [None]
  - VOMITING [None]
  - DRUG DISPENSING ERROR [None]
